FAERS Safety Report 8765680 (Version 2)
Quarter: 2012Q4

REPORT INFORMATION
  Report Type: Report from Study
  Country: US (occurrence: US)
  Receive Date: 20120904
  Receipt Date: 20121008
  Transmission Date: 20130627
  Serious: Yes (Other)
  Sender: FDA-Public Use
  Company Number: US-JNJFOC-20120813113

PATIENT
  Age: 56 Year
  Sex: Male
  Weight: 88.45 kg

DRUGS (6)
  1. REMICADE [Suspect]
     Indication: COLITIS ULCERATIVE
     Route: 042
     Dates: start: 20120807
  2. REMICADE [Suspect]
     Indication: COLITIS ULCERATIVE
     Dosage: ^10^/solution
     Route: 042
     Dates: start: 201205
  3. XANAX [Suspect]
     Indication: SLEEP DISORDER
     Route: 048
     Dates: start: 201208, end: 201208
  4. ZOLOFT [Suspect]
     Indication: PRODUCT USED FOR UNKNOWN INDICATION
     Route: 048
     Dates: start: 201208, end: 201208
  5. ATENOLOL [Concomitant]
     Indication: BLOOD PRESSURE
     Dosage: daily
     Route: 048
  6. AMLODIPINE [Concomitant]
     Indication: BLOOD PRESSURE
     Dosage: daily
     Route: 048

REACTIONS (5)
  - Dyspnoea [Unknown]
  - Chest pain [Unknown]
  - Back pain [Unknown]
  - Insomnia [Not Recovered/Not Resolved]
  - Fatigue [Not Recovered/Not Resolved]
